FAERS Safety Report 24177064 (Version 1)
Quarter: 2024Q3

REPORT INFORMATION
  Report Type: Spontaneous
  Country: US (occurrence: US)
  Receive Date: 20240806
  Receipt Date: 20240806
  Transmission Date: 20241017
  Serious: Yes (Other)
  Sender: AMNEAL
  Company Number: US-AMNEAL-2023-AMRX-02689

PATIENT
  Age: 18 Year
  Sex: Male
  Weight: 43.991 kg

DRUGS (1)
  1. BACLOFEN [Suspect]
     Active Substance: BACLOFEN
     Indication: Product used for unknown indication
     Dosage: 2018.7 MCG/DAY (BASE RATE 81.9 MCG/HR WITH AN 8 HOUR STEP OF 88.5 MCG/HR)
     Route: 037

REACTIONS (1)
  - Post procedural infection [Not Recovered/Not Resolved]

NARRATIVE: CASE EVENT DATE: 20230710
